FAERS Safety Report 8763649 (Version 3)
Quarter: 2013Q1

REPORT INFORMATION
  Report Type: Spontaneous
  Country: US (occurrence: US)
  Receive Date: 20120830
  Receipt Date: 20130313
  Transmission Date: 20140127
  Serious: Yes (Hospitalization, Other)
  Sender: FDA-Public Use
  Company Number: US-AMGEN-USASP2012054456

PATIENT
  Sex: Male

DRUGS (2)
  1. NEUPOGEN [Suspect]
     Indication: PRODUCT USED FOR UNKNOWN INDICATION
     Dosage: 480 MUG, UNK
  2. ANTINEOPLASTIC AGENTS [Concomitant]
     Indication: LEUKAEMIA
     Dosage: UNK

REACTIONS (6)
  - Pneumonia [Recovered/Resolved]
  - Bladder cancer [Not Recovered/Not Resolved]
  - Ureteric obstruction [Unknown]
  - Decreased immune responsiveness [Unknown]
  - Blood creatinine increased [Unknown]
  - Body temperature increased [Unknown]
